FAERS Safety Report 23986243 (Version 2)
Quarter: 2024Q2

REPORT INFORMATION
  Report Type: Spontaneous
  Country: TR (occurrence: TR)
  Receive Date: 20240618
  Receipt Date: 20240628
  Transmission Date: 20240715
  Serious: Yes (Other)
  Sender: FDA-Public Use
  Company Number: None

PATIENT
  Age: 35 Year
  Sex: Female

DRUGS (1)
  1. CLOPIDOGREL BISULFATE [Suspect]
     Active Substance: CLOPIDOGREL BISULFATE
     Indication: Cerebral venous sinus thrombosis
     Dosage: 75 MG, QD

REACTIONS (3)
  - Sciatic nerve neuropathy [Unknown]
  - Haemorrhage [Unknown]
  - Muscle strain [Unknown]
